FAERS Safety Report 8934062 (Version 1)
Quarter: 2012Q4

REPORT INFORMATION
  Report Type: 
  Country: GB (occurrence: GB)
  Receive Date: 20121129
  Receipt Date: 20121129
  Transmission Date: 20130627
  Serious: Yes (Hospitalization, Other)
  Sender: FDA-Public Use
  Company Number: GB-PFIZER INC-2012296848

PATIENT
  Age: 74 Year
  Sex: Female
  Weight: 86 kg

DRUGS (6)
  1. GENOTROPIN [Suspect]
     Dosage: 0.2 mg, 1x/day, 7 injections/week
     Route: 058
     Dates: start: 20081113
  2. AMITRIPTYLINE [Concomitant]
     Indication: DEPRESSIVE ILLNESS
     Dosage: UNK
     Dates: start: 19960601
  3. AMITRIPTYLINE [Concomitant]
     Indication: SEDATION
  4. FLUOXETINE [Concomitant]
     Indication: DEPRESSION
     Dosage: UNK
     Dates: start: 19960601
  5. THYROXINE [Concomitant]
     Indication: HYPOTHYROIDISM
     Dosage: UNK
     Dates: start: 20070101
  6. HYDROCORTISONE [Concomitant]
     Indication: ADRENAL INSUFFICIENCY
     Dosage: UNK
     Dates: start: 20080310

REACTIONS (1)
  - Pneumonia [Unknown]
